FAERS Safety Report 9640372 (Version 5)
Quarter: 2014Q1

REPORT INFORMATION
  Report Type: Report from Study
  Country: US (occurrence: US)
  Receive Date: 20131023
  Receipt Date: 20140318
  Transmission Date: 20141002
  Serious: Yes (Other)
  Sender: FDA-Public Use
  Company Number: US-SA-2013SA104763

PATIENT
  Age: 58 Year
  Sex: Female
  Weight: 77.11 kg

DRUGS (10)
  1. AUBAGIO [Suspect]
     Indication: MULTIPLE SCLEROSIS
     Route: 048
     Dates: start: 20130923, end: 20140301
  2. AMLODIPINE [Concomitant]
     Indication: HYPERTENSION
     Dates: start: 2006
  3. LISINOPRIL [Concomitant]
     Indication: HYPERTENSION
     Dosage: 20 MG..
     Dates: start: 2006
  4. LISINOPRIL [Concomitant]
     Indication: HYPERTENSION
     Dosage: DOSE INCREASED
  5. ZOLOFT [Concomitant]
     Indication: DEPRESSION
     Dates: start: 2010
  6. PROVIGIL [Concomitant]
     Indication: FATIGUE
     Dates: start: 2012
  7. BIOTIN [Concomitant]
     Dosage: 81 MG
     Dates: start: 2010
  8. FISH OIL [Concomitant]
     Dates: start: 2010
  9. ASA [Concomitant]
     Dates: start: 2010
  10. NORVASC [Concomitant]

REACTIONS (11)
  - Pneumonia [Recovering/Resolving]
  - Headache [Recovered/Resolved]
  - Pyrexia [Recovered/Resolved]
  - Upper respiratory tract infection [Recovering/Resolving]
  - Productive cough [Recovered/Resolved]
  - Urinary tract infection [Recovering/Resolving]
  - Back pain [Recovered/Resolved]
  - Blood pressure increased [Recovered/Resolved]
  - Haemoglobin decreased [Unknown]
  - Sinusitis [Unknown]
  - Paraesthesia [Recovering/Resolving]
